FAERS Safety Report 6145502-5 (Version None)
Quarter: 2009Q2

REPORT INFORMATION
  Report Type: 
  Country: None (occurrence: None)
  Receive Date: 20090402
  Receipt Date: 20090318
  Transmission Date: 20091009
  Serious: Yes (Death, Other)
  Sender: FDA-Public Use
  Company Number: 2009000430

PATIENT
  Age: 61 Year
  Sex: Female

DRUGS (3)
  1. TARCEVA [Suspect]
     Indication: ADENOCARCINOMA
     Dosage: (150 MG, QD), ORAL
     Route: 048
     Dates: start: 20090106, end: 20090128
  2. CISPLATIN [Concomitant]
  3. GEMCITABINE [Concomitant]

REACTIONS (2)
  - RASH [None]
  - SEPSIS [None]
